FAERS Safety Report 7630782-7 (Version None)
Quarter: 2011Q3

REPORT INFORMATION
  Report Type: 
  Country: None (occurrence: None)
  Receive Date: 20110722
  Receipt Date: 20110711
  Transmission Date: 20111222
  Serious: Yes (Hospitalization)
  Sender: FDA-Public Use
  Company Number: US-ASTRAZENECA-2011SE41760

PATIENT
  Age: 13553 Day
  Sex: Male

DRUGS (8)
  1. PULMICORT FLEXHALER [Suspect]
     Route: 055
  2. PREDNISONE [Concomitant]
  3. ATIVAN [Concomitant]
  4. AZITHROMYCIN [Concomitant]
  5. ZESTORETIC [Suspect]
     Indication: HYPERTENSION
     Route: 048
  6. GABAPENTINE [Concomitant]
  7. PROAIR HFA [Concomitant]
  8. COMBIVENT [Concomitant]

REACTIONS (1)
  - MALAISE [None]
